FAERS Safety Report 4966344-X (Version None)
Quarter: 2006Q2

REPORT INFORMATION
  Report Type: 
  Country: None (occurrence: None)
  Receive Date: 20060407
  Receipt Date: 20060330
  Transmission Date: 20061013
  Serious: Yes (Hospitalization)
  Sender: FDA-Public Use
  Company Number: US-MERCK-0604USA00028

PATIENT
  Sex: Male
  Weight: 68 kg

DRUGS (1)
  1. VIOXX [Suspect]
     Indication: ARTHRITIS
     Route: 048
     Dates: end: 20040901

REACTIONS (15)
  - ABDOMINAL PAIN [None]
  - ANXIETY [None]
  - BRONCHITIS [None]
  - CEREBROVASCULAR ACCIDENT [None]
  - CHEST PAIN [None]
  - DEPRESSION [None]
  - EMPHYSEMA [None]
  - GASTRITIS [None]
  - HEADACHE [None]
  - INSOMNIA [None]
  - MUSCULOSKELETAL CHEST PAIN [None]
  - NEUROPATHY PERIPHERAL [None]
  - PAIN [None]
  - PHOTOSENSITIVITY REACTION [None]
  - SINUSITIS [None]
